FAERS Safety Report 24299706 (Version 1)
Quarter: 2024Q3

REPORT INFORMATION
  Report Type: Spontaneous
  Country: US (occurrence: None)
  Receive Date: 20240908
  Receipt Date: 20240908
  Transmission Date: 20241017
  Serious: Yes (Other)
  Sender: Public
  Company Number: None

PATIENT
  Age: 33 Year
  Sex: Female
  Weight: 51.75 kg

DRUGS (1)
  1. HERBALS\MUSHROOMS UNSPECIFIED [Suspect]
     Active Substance: HERBALS\MUSHROOMS UNSPECIFIED
     Indication: Feeling of relaxation
     Dosage: 2 CONE  AS NEEDED ORAL ?
     Route: 048
     Dates: start: 20240622, end: 20240622

REACTIONS (8)
  - Nausea [None]
  - Vomiting [None]
  - Heart rate increased [None]
  - Muscle spasms [None]
  - Hypopnoea [None]
  - Somnolence [None]
  - Dizziness [None]
  - Temperature regulation disorder [None]

NARRATIVE: CASE EVENT DATE: 20240622
